FAERS Safety Report 24567686 (Version 1)
Quarter: 2024Q4

REPORT INFORMATION
  Report Type: Spontaneous
  Country: PL (occurrence: PL)
  Receive Date: 20241031
  Receipt Date: 20241031
  Transmission Date: 20250114
  Serious: Yes (Other)
  Sender: ROCHE
  Company Number: PL-ROCHE-10000114783

PATIENT
  Age: 55 Year
  Sex: Female

DRUGS (7)
  1. OCREVUS [Suspect]
     Active Substance: OCRELIZUMAB
     Indication: Relapsing-remitting multiple sclerosis
     Route: 065
     Dates: start: 201701
  2. TRAZODONE HYDROCHLORIDE [Concomitant]
     Active Substance: TRAZODONE HYDROCHLORIDE
  3. BACLOFEN [Concomitant]
     Active Substance: BACLOFEN
  4. TOLPERIS [Concomitant]
  5. METFORMIN HYDROCHLORIDE [Concomitant]
     Active Substance: METFORMIN HYDROCHLORIDE
  6. HEPAREGEN [Concomitant]
  7. ENTECAVIR [Concomitant]
     Active Substance: ENTECAVIR

REACTIONS (1)
  - Invasive lobular breast carcinoma [Unknown]
